FAERS Safety Report 25179288 (Version 2)
Quarter: 2025Q2

REPORT INFORMATION
  Report Type: Spontaneous
  Country: DE (occurrence: DE)
  Receive Date: 20250409
  Receipt Date: 20250414
  Transmission Date: 20250717
  Serious: Yes (Other)
  Sender: ALEXION PHARMACEUTICALS
  Company Number: DE-AstraZeneca-CH-00843546A

PATIENT

DRUGS (4)
  1. STRENSIQ [Suspect]
     Active Substance: ASFOTASE ALFA
     Indication: Hypophosphatasia
     Dosage: 138 MILLIGRAM (40 MG, 80 MG, 18 MG), TIW
  2. CHOLECALCIFEROL [Concomitant]
     Active Substance: CHOLECALCIFEROL
     Dosage: UNK UNK, Q2W
     Route: 065
  3. EZETIMIBE [Concomitant]
     Active Substance: EZETIMIBE
     Route: 065
  4. HYGROTON [Concomitant]
     Active Substance: CHLORTHALIDONE
     Dosage: 12.5 MILLIGRAM, HALF TABLET, QD
     Route: 065

REACTIONS (8)
  - Cardiac failure [Unknown]
  - Tooth disorder [Unknown]
  - Hypersensitivity [Unknown]
  - Kidney enlargement [Unknown]
  - Diarrhoea [Unknown]
  - Asthenia [Unknown]
  - Injection site erythema [Unknown]
  - Myalgia [Unknown]
